FAERS Safety Report 8014616-7 (Version None)
Quarter: 2011Q4

REPORT INFORMATION
  Report Type: 
  Country: None (occurrence: None)
  Receive Date: 20111229
  Receipt Date: 20111222
  Transmission Date: 20120403
  Serious: Yes (Hospitalization)
  Sender: FDA-Public Use
  Company Number: IE-MEDIMMUNE-MEDI-0014289

PATIENT
  Sex: Male
  Weight: 10.6 kg

DRUGS (2)
  1. SYNAGIS [Suspect]
     Route: 030
     Dates: start: 20111027, end: 20111027
  2. OMEPRAZOLE [Concomitant]

REACTIONS (1)
  - LUNG INFECTION [None]
